FAERS Safety Report 21623247 (Version 1)
Quarter: 2022Q4

REPORT INFORMATION
  Report Type: Report from Study
  Country: DE (occurrence: DE)
  Receive Date: 20221121
  Receipt Date: 20221121
  Transmission Date: 20230113
  Serious: Yes (Hospitalization)
  Sender: FDA-Public Use
  Company Number: DE-BAXTER-2022BAX025005

PATIENT
  Age: 84 Year
  Sex: Female
  Weight: 51.1 kg

DRUGS (5)
  1. AMINO ACIDS\DEXTROSE\ELECTROLYTES NOS\SOYBEAN OIL [Suspect]
     Active Substance: AMINO ACIDS\DEXTROSE\ELECTROLYTES NOS\SOYBEAN OIL
     Indication: Parenteral nutrition
     Dosage: 1085 ML, THRICE A WEEK VIA CENTRAL VENOUS ROUTE AT THE INFUSION RATE OF 42 ML PER HOUR
     Route: 042
     Dates: start: 20221115
  2. CERNEVIT [Suspect]
     Active Substance: VITAMINS
     Indication: Parenteral nutrition
     Dosage: 750 MG, FOUR TIMES A WEEK VIA CENTRAL VENOUS ROUTE
     Route: 042
     Dates: start: 20221115
  3. ELECTROLYTES NOS\MINERALS [Suspect]
     Active Substance: ELECTROLYTES NOS\MINERALS
     Indication: Parenteral nutrition
     Dosage: 10 ML, FOUR TIMES A WEEK VIA CENTAL VENOUS ROUTE
     Route: 042
     Dates: start: 20221115
  4. CALCIUM CHLORIDE\DEXTROSE\POTASSIUM CHLORIDE\SODIUM CHLORIDE [Suspect]
     Active Substance: CALCIUM CHLORIDE\DEXTROSE\POTASSIUM CHLORIDE\SODIUM CHLORIDE
     Indication: Fluid replacement
     Dosage: 1000 ML, THRICE A WEEK VIA CENTRAL VENOUS ROUTE AT THE INFUSION RATE OF 42 ML PER HOUR
     Route: 042
     Dates: start: 20221115
  5. UNSPECIFIED INGREDIENT [Suspect]
     Active Substance: UNSPECIFIED INGREDIENT
     Route: 065

REACTIONS (2)
  - Fistula [Unknown]
  - Haemorrhage [Unknown]

NARRATIVE: CASE EVENT DATE: 20221115
